FAERS Safety Report 20983594 (Version 2)
Quarter: 2022Q3

REPORT INFORMATION
  Report Type: Report from Study
  Country: US (occurrence: US)
  Receive Date: 20220620
  Receipt Date: 20220714
  Transmission Date: 20221026
  Serious: Yes (Other)
  Sender: FDA-Public Use
  Company Number: US-TAKEDA-US201614867

PATIENT
  Age: 50 Year
  Sex: Female

DRUGS (2)
  1. VELAGLUCERASE ALFA [Suspect]
     Active Substance: VELAGLUCERASE ALFA
     Indication: Gaucher^s disease
     Dosage: 5600 INTERNATIONAL UNIT, Q2WEEKS
     Route: 041
     Dates: start: 20111018
  2. VELAGLUCERASE ALFA [Suspect]
     Active Substance: VELAGLUCERASE ALFA
     Dosage: UNK
     Route: 042
     Dates: start: 20111018

REACTIONS (5)
  - Hip arthroplasty [Recovering/Resolving]
  - Poor quality sleep [Recovered/Resolved]
  - Pain in extremity [Recovered/Resolved]
  - Infusion related reaction [Recovered/Resolved]
  - Product dose omission issue [Recovering/Resolving]

NARRATIVE: CASE EVENT DATE: 20161010
